FAERS Safety Report 13375714 (Version 1)
Quarter: 2017Q1

REPORT INFORMATION
  Report Type: Spontaneous
  Country: US (occurrence: US)
  Receive Date: 20170328
  Receipt Date: 20170328
  Transmission Date: 20170429
  Serious: No
  Sender: FDA-Public Use
  Company Number: US-ASTRAZENECA-2017SE28252

PATIENT
  Sex: Female

DRUGS (4)
  1. CRESTOR [Suspect]
     Active Substance: ROSUVASTATIN CALCIUM
     Dosage: UNKNOWN
     Route: 048
  2. ASPIRIN. [Concomitant]
     Active Substance: ASPIRIN
     Dosage: UNKNOWN
     Route: 065
  3. BRILINTA [Suspect]
     Active Substance: TICAGRELOR
     Indication: STENT PLACEMENT
     Dosage: UNKNOWN
     Route: 048
  4. TYLENOL [Concomitant]
     Active Substance: ACETAMINOPHEN
     Indication: PAIN
     Dosage: UNKNOWN
     Route: 065

REACTIONS (6)
  - Pain in extremity [Not Recovered/Not Resolved]
  - Mass [Not Recovered/Not Resolved]
  - Pain [Unknown]
  - Adverse event [Unknown]
  - Peripheral swelling [Not Recovered/Not Resolved]
  - Contusion [Not Recovered/Not Resolved]
